FAERS Safety Report 20178942 (Version 4)
Quarter: 2022Q1

REPORT INFORMATION
  Report Type: Spontaneous
  Country: CO (occurrence: CO)
  Receive Date: 20211214
  Receipt Date: 20220322
  Transmission Date: 20220423
  Serious: Yes (Life-Threatening, Other)
  Sender: FDA-Public Use
  Company Number: CO-PFIZER INC-202101711805

PATIENT
  Age: 47 Year
  Sex: Female

DRUGS (1)
  1. ENBREL [Suspect]
     Active Substance: ETANERCEPT
     Indication: Product used for unknown indication
     Dosage: 50 MG IN A UNSPECIFIED FREQUENCY
     Route: 058
     Dates: start: 2013

REACTIONS (13)
  - Abdominal hernia [Not Recovered/Not Resolved]
  - Uterine cyst [Recovered/Resolved]
  - Leiomyoma [Recovered/Resolved]
  - Vaginal haemorrhage [Recovered/Resolved]
  - Axillary mass [Unknown]
  - Fall [Recovered/Resolved]
  - Mass [Unknown]
  - Suture rupture [Not Recovered/Not Resolved]
  - Cyst [Unknown]
  - Dizziness [Recovered/Resolved]
  - Wound haemorrhage [Recovered/Resolved]
  - Product dose omission issue [Not Recovered/Not Resolved]
  - Product dispensing issue [Unknown]

NARRATIVE: CASE EVENT DATE: 20191001
